FAERS Safety Report 5139378-2 (Version None)
Quarter: 2006Q4

REPORT INFORMATION
  Report Type: 
  Country: None (occurrence: None)
  Receive Date: 20061024
  Receipt Date: 20061009
  Transmission Date: 20070319
  Serious: No
  Sender: FDA-Public Use
  Company Number: TPA2006A01755

PATIENT
  Age: 33 Year
  Sex: Female
  Weight: 61.2356 kg

DRUGS (2)
  1. ROZEREM (RAMELTON) (8 MILLIGRAM, TABLETS) [Suspect]
     Indication: INSOMNIA
     Dosage: 8 MG, 3 TABS HS, PER ORAL
     Route: 048
     Dates: start: 20061003
  2. SEROQUEL [Concomitant]

REACTIONS (1)
  - ACCIDENTAL OVERDOSE [None]
